FAERS Safety Report 13877544 (Version 2)
Quarter: 2017Q3

REPORT INFORMATION
  Report Type: Spontaneous
  Country: US (occurrence: US)
  Receive Date: 20170817
  Receipt Date: 20170922
  Transmission Date: 20171127
  Serious: Yes (Death, Hospitalization, Other)
  Sender: FDA-Public Use
  Company Number: US-PFIZER INC-2017353568

PATIENT
  Age: 7 Year
  Sex: Male

DRUGS (4)
  1. EFLORNITHINE [Concomitant]
     Active Substance: EFLORNITHINE
     Dosage: UNK
  2. GABAPENTIN. [Concomitant]
     Active Substance: GABAPENTIN
     Dosage: UNK
  3. MORPHINE SULFATE. [Suspect]
     Active Substance: MORPHINE SULFATE
     Indication: PAIN
     Dosage: 0.05 MG/KG/HR VIA PCA (0.7 MG)
     Dates: start: 201609, end: 201609
  4. DINUTUXIMAB [Concomitant]
     Active Substance: DINUTUXIMAB
     Dosage: UNK

REACTIONS (3)
  - Overdose [Recovered/Resolved]
  - Metabolic disorder [Unknown]
  - Respiratory depression [Recovered/Resolved]
